FAERS Safety Report 4342566-6 (Version None)
Quarter: 2004Q1

REPORT INFORMATION
  Report Type: 
  Country: None (occurrence: None)
  Receive Date: 20040213
  Receipt Date: 20031217
  Transmission Date: 20041129
  Serious: Yes (Hospitalization)
  Sender: FDA-Public Use
  Company Number: 354533

PATIENT
  Age: 38 Year
  Sex: Male

DRUGS (2)
  1. PEGASYS [Suspect]
     Indication: UNEVALUABLE EVENT
     Dosage: OTHER
     Route: 050
  2. COPEGUS [Suspect]
     Indication: UNEVALUABLE EVENT
     Dosage: ORAL
     Route: 048

REACTIONS (2)
  - INJECTION SITE CELLULITIS [None]
  - PNEUMONIA [None]
